FAERS Safety Report 14140413 (Version 2)
Quarter: 2017Q4

REPORT INFORMATION
  Report Type: Spontaneous
  Country: US (occurrence: US)
  Receive Date: 20171030
  Receipt Date: 20171103
  Transmission Date: 20180321
  Serious: No
  Sender: FDA-Public Use
  Company Number: PHEH2017US034957

PATIENT
  Age: 76 Year
  Sex: Female
  Weight: 71 kg

DRUGS (1)
  1. ENTRESTO [Suspect]
     Active Substance: SACUBITRIL\VALSARTAN
     Indication: ISCHAEMIC CARDIOMYOPATHY
     Dosage: 50 MG (24/26 MG), BID
     Route: 048
     Dates: start: 20170901, end: 20171017

REACTIONS (4)
  - Feeling abnormal [Recovered/Resolved]
  - Mental status changes [Recovering/Resolving]
  - Hypotension [Recovered/Resolved]
  - Hyperhidrosis [Recovered/Resolved]

NARRATIVE: CASE EVENT DATE: 20170901
